FAERS Safety Report 6301816-7 (Version None)
Quarter: 2009Q3

REPORT INFORMATION
  Report Type: 
  Country: None (occurrence: None)
  Receive Date: 20090807
  Receipt Date: 20090803
  Transmission Date: 20100115
  Serious: Yes (Hospitalization)
  Sender: FDA-Public Use
  Company Number: FR-AVENTIS-200912861FR

PATIENT
  Age: 37 Year
  Sex: Female

DRUGS (14)
  1. RIFADIN [Suspect]
     Indication: DISSEMINATED TUBERCULOSIS
     Route: 048
     Dates: start: 20090503, end: 20090516
  2. RIFADIN [Suspect]
     Route: 048
     Dates: start: 20090525, end: 20090529
  3. IZILOX [Suspect]
     Indication: DISSEMINATED TUBERCULOSIS
     Route: 048
     Dates: start: 20090525, end: 20090529
  4. MYAMBUTOL [Suspect]
     Indication: DISSEMINATED TUBERCULOSIS
     Route: 048
     Dates: start: 20090425, end: 20090516
  5. MYAMBUTOL [Suspect]
     Route: 048
     Dates: start: 20090525, end: 20090529
  6. RIMIFON [Concomitant]
     Indication: DISSEMINATED TUBERCULOSIS
     Route: 048
     Dates: start: 20090425, end: 20090516
  7. ZECLAR [Concomitant]
     Indication: DISSEMINATED TUBERCULOSIS
     Dates: start: 20090425, end: 20090503
  8. ANSATIPINE [Concomitant]
     Indication: DISSEMINATED TUBERCULOSIS
     Dates: start: 20090425, end: 20090503
  9. SUSTIVA [Concomitant]
     Route: 048
     Dates: start: 20090505, end: 20090516
  10. TRUVADA [Concomitant]
     Route: 048
     Dates: start: 20090505, end: 20090516
  11. FUZEON [Concomitant]
     Dates: start: 20090505, end: 20090516
  12. SINGULAIR [Concomitant]
     Dates: start: 20090511, end: 20090516
  13. IMOVANE [Concomitant]
     Indication: INSOMNIA
     Route: 048
     Dates: start: 20090427, end: 20090516
  14. BACTRIM [Concomitant]
     Route: 048
     Dates: start: 20090425, end: 20090516

REACTIONS (1)
  - CHOLESTASIS [None]
